FAERS Safety Report 4311601-3 (Version None)
Quarter: 2004Q1

REPORT INFORMATION
  Report Type: 
  Country: None (occurrence: None)
  Receive Date: 20040302
  Receipt Date: 20031210
  Transmission Date: 20041129
  Serious: Yes (Other)
  Sender: FDA-Public Use
  Company Number: 200325804BWH

PATIENT
  Age: 59 Year
  Sex: Male

DRUGS (2)
  1. LEVITRA [Suspect]
     Indication: ERECTILE DYSFUNCTION
     Dosage: 10 MG TOTAL DAILY ORAL, 10 MG PRN ORAL
     Route: 048
     Dates: start: 20031002
  2. BACTRIM DS [Concomitant]

REACTIONS (4)
  - EYE IRRITATION [None]
  - FEELING HOT [None]
  - HEADACHE [None]
  - TINNITUS [None]
